FAERS Safety Report 6339635-8 (Version None)
Quarter: 2009Q3

REPORT INFORMATION
  Report Type: 
  Country: None (occurrence: None)
  Receive Date: 20090903
  Receipt Date: 20090825
  Transmission Date: 20100115
  Serious: Yes (Death)
  Sender: FDA-Public Use
  Company Number: US-JNJFOC-20090808341

PATIENT
  Age: 48 Year
  Sex: Female

DRUGS (1)
  1. EXTRA STRENGTH TYLENOL [Suspect]
     Indication: INTENTIONAL OVERDOSE
     Dosage: 1351 MG/KG ACETAMINOPHEN AND 68 MG/KG OF DIPHENHYDRAMINE
     Route: 048

REACTIONS (3)
  - GASTROINTESTINAL HAEMORRHAGE [None]
  - HEPATIC NECROSIS [None]
  - INTENTIONAL OVERDOSE [None]
